FAERS Safety Report 6178128-8 (Version None)
Quarter: 2009Q2

REPORT INFORMATION
  Report Type: 
  Country: None (occurrence: None)
  Receive Date: 20090504
  Receipt Date: 20090424
  Transmission Date: 20091009
  Serious: Yes (Hospitalization, Other)
  Sender: FDA-Public Use
  Company Number: PHHY2009AU13430

PATIENT
  Sex: Male
  Weight: 68 kg

DRUGS (4)
  1. EXJADE [Suspect]
     Indication: MYELODYSPLASTIC SYNDROME
     Dosage: 500 MG, BID
     Dates: start: 20070401, end: 20090303
  2. B12 ^RECIP^ [Concomitant]
     Dosage: 1000 UG, QD
  3. FOLIC ACID [Concomitant]
     Dosage: 5 MG, QD
  4. RED BLOOD CELLS [Concomitant]
     Dosage: 2 -3 UNITS EVERY 2 WEEKS

REACTIONS (4)
  - EPISTAXIS [None]
  - RASH GENERALISED [None]
  - SWELLING FACE [None]
  - URINARY TRACT INFECTION BACTERIAL [None]
